FAERS Safety Report 22400859 (Version 1)
Quarter: 2023Q2

REPORT INFORMATION
  Report Type: Spontaneous
  Country: US (occurrence: US)
  Receive Date: 20230602
  Receipt Date: 20230602
  Transmission Date: 20230721
  Serious: No
  Sender: FDA-Public Use
  Company Number: US-MIRATI-MT2023PM04061

PATIENT

DRUGS (1)
  1. KRAZATI [Suspect]
     Active Substance: ADAGRASIB
     Indication: Non-small cell lung cancer
     Dosage: ^STANDARD DOSE^
     Route: 048

REACTIONS (2)
  - Abdominal distension [Unknown]
  - Oedema peripheral [Unknown]
